FAERS Safety Report 7840808-3 (Version None)
Quarter: 2011Q4

REPORT INFORMATION
  Report Type: 
  Country: None (occurrence: None)
  Receive Date: 20111021
  Receipt Date: 20111021
  Transmission Date: 20120403
  Serious: No
  Sender: FDA-Public Use
  Company Number: None

PATIENT
  Sex: Female
  Weight: 61.8 kg

DRUGS (1)
  1. BEYAZ [Suspect]
     Dosage: 1 PILL PER DAY

REACTIONS (6)
  - VISUAL FIELD DEFECT [None]
  - FATIGUE [None]
  - BREAST TENDERNESS [None]
  - ARTHRALGIA [None]
  - PAIN IN EXTREMITY [None]
  - MIGRAINE [None]
